FAERS Safety Report 9523862 (Version 1)
Quarter: 2013Q3

REPORT INFORMATION
  Report Type: Spontaneous
  Country: US (occurrence: None)
  Receive Date: 20130912
  Receipt Date: 20130912
  Transmission Date: 20140515
  Serious: Yes (Other)
  Sender: FDA-Public Use
  Company Number: ACO_37342_2013

PATIENT
  Age: 64 Year
  Sex: Female

DRUGS (1)
  1. AMPYRA (DALFAMPRIDIEN) [Suspect]
     Indication: MULTIPLE SCLEROSIS
     Dates: start: 201305, end: 201306

REACTIONS (5)
  - Dysstasia [None]
  - Vision blurred [None]
  - Influenza like illness [None]
  - Pain in extremity [None]
  - Dizziness [None]
